FAERS Safety Report 5067434-6 (Version None)
Quarter: 2006Q3

REPORT INFORMATION
  Report Type: 
  Country: None (occurrence: None)
  Receive Date: 20060726
  Receipt Date: 20060721
  Transmission Date: 20061208
  Serious: Yes (Death, Hospitalization)
  Sender: FDA-Public Use
  Company Number: TCI2006A02222

PATIENT
  Age: 64 Year
  Sex: Male

DRUGS (10)
  1. LANSOPRAZOLE [Suspect]
     Indication: GASTRIC DISORDER
     Dosage: 15 MG (15 MG, 1 IN 1 D), PER ORAL
     Route: 048
     Dates: start: 20060430, end: 20060517
  2. LANSOPRAZOLE [Suspect]
     Indication: PROPHYLAXIS
     Dosage: 15 MG (15 MG, 1 IN 1 D), PER ORAL
     Route: 048
     Dates: start: 20060430, end: 20060517
  3. BUFFERIN [Concomitant]
  4. TICLOPIDINE HCL [Concomitant]
  5. LOSARTAN POTASSIUM [Concomitant]
  6. SIGMART (NICORANDIL) [Concomitant]
  7. MEXITIL [Concomitant]
  8. MUCOSTA (REBAMIPIDE) [Concomitant]
  9. FRANDOL TAPE-S (POULTICE OR PATCH) [Concomitant]
  10. LASIX [Concomitant]

REACTIONS (3)
  - CARDIO-RESPIRATORY ARREST [None]
  - PULMONARY ALVEOLAR HAEMORRHAGE [None]
  - PULMONARY CONGESTION [None]
